FAERS Safety Report 8303708-0 (Version None)
Quarter: 2012Q2

REPORT INFORMATION
  Report Type: 
  Country: None (occurrence: None)
  Receive Date: 20120423
  Receipt Date: 20120420
  Transmission Date: 20120825
  Serious: No
  Sender: FDA-Public Use
  Company Number: US-PFIZER INC-2012098658

PATIENT
  Sex: Male
  Weight: 95.238 kg

DRUGS (3)
  1. NORTRIPTYLINE [Concomitant]
     Indication: PERONEAL MUSCULAR ATROPHY
     Dosage: 50 MG, DAILY
  2. CHANTIX [Suspect]
     Indication: SMOKING CESSATION THERAPY
     Dosage: 0.5 MG, DAILY
     Dates: start: 20120301, end: 20120101
  3. CHANTIX [Suspect]
     Dosage: 1 MG, 2X/DAY
     Dates: start: 20120101, end: 20120401

REACTIONS (4)
  - VOMITING [None]
  - DRUG INEFFECTIVE [None]
  - DISCOMFORT [None]
  - NAUSEA [None]
